FAERS Safety Report 5658845-6 (Version None)
Quarter: 2008Q1

REPORT INFORMATION
  Report Type: 
  Country: None (occurrence: None)
  Receive Date: 20080310
  Receipt Date: 20070424
  Transmission Date: 20080703
  Serious: No
  Sender: FDA-Public Use
  Company Number: US-BAYER-200711253BCC

PATIENT
  Age: 73 Year
  Sex: Female
  Weight: 79 kg

DRUGS (6)
  1. ALEVE [Suspect]
     Indication: DRUG USE FOR UNKNOWN INDICATION
     Dosage: TOTAL DAILY DOSE: 440 MG  UNIT DOSE: 220 MG
     Route: 048
  2. TYLENOL (CAPLET) [Concomitant]
  3. ALTACE [Concomitant]
  4. CALCIUM [Concomitant]
  5. DIURETIC [Concomitant]
  6. VITAMIN D [Concomitant]

REACTIONS (2)
  - DYSGEUSIA [None]
  - OESOPHAGEAL DISCOMFORT [None]
